FAERS Safety Report 6689945-X (Version None)
Quarter: 2010Q2

REPORT INFORMATION
  Report Type: 
  Country: None (occurrence: None)
  Receive Date: 20100421
  Receipt Date: 20100412
  Transmission Date: 20101027
  Serious: Yes (Other)
  Sender: FDA-Public Use
  Company Number: JP-PFIZER INC-2010048929

PATIENT

DRUGS (3)
  1. CHAMPIX [Suspect]
     Dosage: UNK
     Route: 048
  2. HALCION [Concomitant]
     Dosage: UNK
     Route: 048
     Dates: start: 20100327
  3. LEXOTAN [Concomitant]
     Dosage: UNK
     Route: 048
     Dates: start: 20100327

REACTIONS (2)
  - BLADDER DILATATION [None]
  - INSOMNIA [None]
